FAERS Safety Report 9654657 (Version 1)
Quarter: 2013Q4

REPORT INFORMATION
  Report Type: Spontaneous
  Country: GB (occurrence: None)
  Receive Date: 20131028
  Receipt Date: 20131028
  Transmission Date: 20140711
  Serious: Yes (Death, Hospitalization, Other)
  Sender: FDA-Public Use
  Company Number: AUR-APL-2013-08827

PATIENT
  Age: 82 Year
  Sex: Female
  Weight: 51 kg

DRUGS (8)
  1. CLOPIDOGREL [Suspect]
     Indication: CARDIAC DISORDER
     Dates: start: 20121101, end: 201211
  2. ASPIRIN (ACETYLSALICYLIC ACID) [Suspect]
     Indication: CARDIAC DISORDER
     Dates: start: 20121101, end: 201211
  3. CLEXANE (ENOXAPARIN SODIUM) [Suspect]
     Indication: CARDIAC DISORDER
     Dates: start: 20121101, end: 201211
  4. CANDESARTAN [Concomitant]
  5. FLUOXETINE (FLUOXETINE) [Concomitant]
  6. INSULIN (INSULIN) [Concomitant]
  7. SALBUTAMOL (SALBUTAMOL) [Concomitant]
  8. TITOTROPIUM (TIOTROPIUM) [Concomitant]

REACTIONS (10)
  - Retroperitoneal haemorrhage [None]
  - Fall [None]
  - Arthralgia [None]
  - Contusion [None]
  - General physical health deterioration [None]
  - Haemorrhage [None]
  - Pallor [None]
  - Anticoagulant therapy [None]
  - Blood glucose increased [None]
  - Hypotension [None]
